FAERS Safety Report 5676571-4 (Version None)
Quarter: 2008Q1

REPORT INFORMATION
  Report Type: 
  Country: None (occurrence: None)
  Receive Date: 20080318
  Receipt Date: 20080229
  Transmission Date: 20080703
  Serious: Yes (Death, Other)
  Sender: FDA-Public Use
  Company Number: MIN-00294

PATIENT
  Age: 45 Year
  Sex: Female

DRUGS (1)
  1. MINOCYCLINE HCL [Suspect]
     Indication: ACNE

REACTIONS (7)
  - DRUG LEVEL INCREASED [None]
  - DRUG RASH WITH EOSINOPHILIA AND SYSTEMIC SYMPTOMS [None]
  - LIVER DISORDER [None]
  - LUNG DISORDER [None]
  - PERICARDIAL DISEASE [None]
  - RENAL DISORDER [None]
  - SKIN TEST POSITIVE [None]
